FAERS Safety Report 19908902 (Version 2)
Quarter: 2021Q4

REPORT INFORMATION
  Report Type: Spontaneous
  Country: TR (occurrence: TR)
  Receive Date: 20211001
  Receipt Date: 20211221
  Transmission Date: 20220303
  Serious: Yes (Hospitalization, Other)
  Sender: FDA-Public Use
  Company Number: TR-009507513-2109TUR005719

PATIENT
  Age: 68 Year
  Sex: Female

DRUGS (3)
  1. TEMOZOLOMIDE [Suspect]
     Active Substance: TEMOZOLOMIDE
     Indication: Glioblastoma
     Dosage: 135 MILLIGRAM
     Route: 048
     Dates: start: 201604
  2. TEMOZOLOMIDE [Suspect]
     Active Substance: TEMOZOLOMIDE
     Dosage: 270 MILLIGRAM
     Dates: start: 20160405, end: 20160516
  3. DEXAMETHASONE [Suspect]
     Active Substance: DEXAMETHASONE
     Indication: Glioblastoma
     Dosage: 2 MILLIGRAM, BID
     Route: 048
     Dates: start: 20140425, end: 20160726

REACTIONS (3)
  - Nocardiosis [Recovered/Resolved]
  - Muscle abscess [Recovered/Resolved]
  - Lymphopenia [Unknown]

NARRATIVE: CASE EVENT DATE: 20160701
